FAERS Safety Report 18387815 (Version 1)
Quarter: 2020Q4

REPORT INFORMATION
  Report Type: Spontaneous
  Country: US (occurrence: US)
  Receive Date: 20201015
  Receipt Date: 20201015
  Transmission Date: 20210114
  Serious: Yes (Other)
  Sender: FDA-Public Use
  Company Number: US-PFIZER INC-2003011357

PATIENT
  Age: 72 Year
  Sex: Female

DRUGS (12)
  1. WARFARIN [Interacting]
     Active Substance: WARFARIN
     Dosage: 2 MG, 1X/DAY
     Route: 048
  2. POTASSIUM CHLORIDE. [Concomitant]
     Active Substance: POTASSIUM CHLORIDE
     Dosage: 20 MEQ, 1X/DAY
     Route: 048
  3. PREDNISONE. [Concomitant]
     Active Substance: PREDNISONE
     Dosage: 40 MG, 1X/DAY (ON A TAPERING SCHEDULE)
     Route: 048
  4. AZITHROMYCIN ANHYDROUS. [Suspect]
     Active Substance: AZITHROMYCIN ANHYDROUS
     Indication: PNEUMONIA
     Dosage: 500 MG, 1X/DAY (EVERY 24 HOURS)
     Route: 042
  5. DILTIAZEM HCL [Concomitant]
     Active Substance: DILTIAZEM HYDROCHLORIDE
     Dosage: 240 MG, 1X/DAY
     Route: 048
  6. LISINOPRIL. [Concomitant]
     Active Substance: LISINOPRIL
     Dosage: 10 MG, 1X/DAY
     Route: 048
  7. ALBUTEROL [SALBUTAMOL] [Concomitant]
     Active Substance: ALBUTEROL
     Dosage: UNK (NEBULIZED)
     Route: 055
  8. FUROSEMIDE. [Concomitant]
     Active Substance: FUROSEMIDE
     Dosage: 40 MG, 1X/DAY
     Route: 048
  9. GUAIFENESIN. [Concomitant]
     Active Substance: GUAIFENESIN
     Dosage: 10 ML, EVERY 4 HOURS
     Route: 048
  10. ACETAMINOPHEN. [Concomitant]
     Active Substance: ACETAMINOPHEN
     Dosage: 650 MG, EVERY 4 HOURS AS NEEDED
     Route: 048
  11. INSULIN [Concomitant]
     Active Substance: INSULIN NOS
     Dosage: UNK (SLIDING-SCALE)
  12. IBUPROFEN. [Concomitant]
     Active Substance: IBUPROFEN
     Dosage: 400 MG, EVERY 6 HOURS AS NEEDED
     Route: 048

REACTIONS (3)
  - Haemorrhage [Recovered/Resolved]
  - Hypoprothrombinaemia [Recovered/Resolved]
  - Drug interaction [Unknown]
